FAERS Safety Report 5272126-4 (Version None)
Quarter: 2007Q1

REPORT INFORMATION
  Report Type: 
  Country: None (occurrence: None)
  Receive Date: 20070319
  Receipt Date: 20070312
  Transmission Date: 20070707
  Serious: Yes (Other)
  Sender: FDA-Public Use
  Company Number: 011600

PATIENT
  Sex: Female

DRUGS (5)
  1. MEDROXYPROGESTERONE [Suspect]
     Dosage: ORAL
     Route: 048
  2. CYCRIN [Suspect]
     Dosage: ORAL
     Route: 048
  3. ESTRATAB [Suspect]
     Dosage: ORAL
     Route: 048
  4. MENEST [Suspect]
     Dosage: ORAL
     Route: 048
  5. PROVERA [Suspect]
     Dosage: ORAL
     Route: 048

REACTIONS (2)
  - BREAST CANCER IN SITU [None]
  - BREAST CANCER METASTATIC [None]
